FAERS Safety Report 7950392-1 (Version None)
Quarter: 2011Q4

REPORT INFORMATION
  Report Type: 
  Country: None (occurrence: None)
  Receive Date: 20111130
  Receipt Date: 20111122
  Transmission Date: 20120403
  Serious: Yes (Life-Threatening, Disabling)
  Sender: FDA-Public Use
  Company Number: FR-BRACCO-000698

PATIENT
  Sex: Female

DRUGS (2)
  1. TRANSIPEG [Concomitant]
  2. MULTIHANCE [Suspect]
     Indication: ANGIOGRAM
     Route: 042
     Dates: start: 20111028, end: 20111028

REACTIONS (3)
  - ANAPHYLACTOID SHOCK [None]
  - RASH [None]
  - CARDIO-RESPIRATORY ARREST [None]
